FAERS Safety Report 18592019 (Version 1)
Quarter: 2020Q4

REPORT INFORMATION
  Report Type: Spontaneous
  Country: US (occurrence: US)
  Receive Date: 20201208
  Receipt Date: 20201208
  Transmission Date: 20210114
  Serious: Yes (Disabling)
  Sender: FDA-Public Use
  Company Number: US-APPCO PHARMA LLC-2101751

PATIENT
  Age: 52 Year
  Sex: Female
  Weight: 76.95 kg

DRUGS (12)
  1. PROGESTERONE. [Concomitant]
     Active Substance: PROGESTERONE
     Route: 065
  2. MAGNESIUM CITRATE. [Concomitant]
     Active Substance: MAGNESIUM CITRATE
     Route: 065
  3. VAGIFEM [Concomitant]
     Active Substance: ESTRADIOL
     Route: 065
  4. VITAMIN D [Concomitant]
     Active Substance: VITAMIN D NOS
     Route: 065
  5. MAXALT [Concomitant]
     Active Substance: RIZATRIPTAN BENZOATE
     Route: 065
  6. POTASSIUM [Concomitant]
     Active Substance: POTASSIUM
     Route: 065
  7. BETAINE HYDROCHLORIDE [Concomitant]
     Active Substance: BETAINE HYDROCHLORIDE
     Route: 065
  8. HYDROXYCHLOROQUINE SULFATE. [Suspect]
     Active Substance: HYDROXYCHLOROQUINE SULFATE
     Indication: AUTOIMMUNE DISORDER
     Route: 065
     Dates: start: 202004, end: 202007
  9. TIZANIDINE. [Concomitant]
     Active Substance: TIZANIDINE
     Route: 065
  10. CALCIUM CITRATE [Concomitant]
     Active Substance: CALCIUM CITRATE
     Route: 065
  11. SAM-E (S-ADENOSYL METHIONINE) [Concomitant]
     Route: 065
  12. PS-100 [Concomitant]
     Route: 065

REACTIONS (14)
  - Drug ineffective [Recovered/Resolved]
  - Symptom recurrence [Recovered/Resolved]
  - Vision blurred [Recovered/Resolved]
  - Connective tissue disorder [Recovered/Resolved]
  - Wrist deformity [Not Recovered/Not Resolved]
  - Arthritis [Recovered/Resolved]
  - Joint injury [Not Recovered/Not Resolved]
  - Asthenopia [Recovered/Resolved]
  - Rash [Recovered/Resolved]
  - Arthralgia [Recovered/Resolved]
  - Swelling [Recovered/Resolved]
  - Condition aggravated [Recovered/Resolved]
  - Product substitution issue [Recovered/Resolved]
  - Exostosis [Recovered/Resolved]
